FAERS Safety Report 18022003 (Version 1)
Quarter: 2020Q3

REPORT INFORMATION
  Report Type: Spontaneous
  Country: US (occurrence: US)
  Receive Date: 20200714
  Receipt Date: 20200714
  Transmission Date: 20201103
  Serious: No
  Sender: FDA-Public Use
  Company Number: NVSC2020US193477

PATIENT

DRUGS (1)
  1. LAMISIL AT [Suspect]
     Active Substance: TERBINAFINE HYDROCHLORIDE
     Indication: TINEA PEDIS
     Dosage: UNK,(ATHLETES FOOT GOING ON 3 WEEKS)
     Route: 065

REACTIONS (2)
  - Incorrect product administration duration [Unknown]
  - Therapeutic product effect incomplete [Unknown]
